FAERS Safety Report 6596709-4 (Version None)
Quarter: 2010Q1

REPORT INFORMATION
  Report Type: 
  Country: None (occurrence: None)
  Receive Date: 20100212
  Receipt Date: 20100123
  Transmission Date: 20100710
  Serious: No
  Sender: FDA-Public Use
  Company Number: 2010-00077

PATIENT
  Age: 68 Year
  Sex: Male
  Weight: 106.5953 kg

DRUGS (3)
  1. ZICAM COLD REMEDY RAPID MELTS WITH VITAMIN C [Suspect]
     Dosage: 1-2 X'S DAILY, 3 DAYS
     Dates: start: 20100120, end: 20100123
  2. LEADERS MEN'S HEALTH ONE-A-DAY MULTIVITAMIN [Concomitant]
  3. 21ST CENTURY NATURAL VITAMIN C [Concomitant]

REACTIONS (1)
  - AGEUSIA [None]
